FAERS Safety Report 22873716 (Version 2)
Quarter: 2023Q4

REPORT INFORMATION
  Report Type: Spontaneous
  Country: AU (occurrence: None)
  Receive Date: 20230828
  Receipt Date: 20231208
  Transmission Date: 20240110
  Serious: Yes (Life-Threatening, Other)
  Sender: FDA-Public Use
  Company Number: 2023A195221

PATIENT
  Sex: Female

DRUGS (10)
  1. ESOMEPRAZOLE MAGNESIUM [Interacting]
     Active Substance: ESOMEPRAZOLE\ESOMEPRAZOLE MAGNESIUM\ESOMEPRAZOLE MAGNESIUM DIHYDRATE
  2. XELJANZ [Interacting]
     Active Substance: TOFACITINIB CITRATE
  3. AMLODIPINE [Interacting]
     Active Substance: AMLODIPINE BESYLATE
  4. ESCITALOPRAM [Interacting]
     Active Substance: ESCITALOPRAM OXALATE
  5. FLUOXETINE HYDROCHLORIDE [Interacting]
     Active Substance: FLUOXETINE HYDROCHLORIDE
  6. MOCLOBEMIDE [Interacting]
     Active Substance: MOCLOBEMIDE
  7. ACETAMINOPHEN [Interacting]
     Active Substance: ACETAMINOPHEN
  8. TRAMADOL HYDROCHLORIDE [Interacting]
     Active Substance: TRAMADOL HYDROCHLORIDE
  9. VALSARTAN [Interacting]
     Active Substance: VALSARTAN
  10. VENLAFAXINE HYDROCHLORIDE [Interacting]
     Active Substance: VENLAFAXINE HYDROCHLORIDE

REACTIONS (8)
  - Suicide attempt [Unknown]
  - Acute kidney injury [Unknown]
  - Metabolic acidosis [Unknown]
  - Drug interaction [Unknown]
  - Intentional overdose [Unknown]
  - Major depression [Unknown]
  - Physical deconditioning [Unknown]
  - Serotonin syndrome [Unknown]
